FAERS Safety Report 9034337 (Version 1)
Quarter: 2013Q1

REPORT INFORMATION
  Report Type: Spontaneous
  Country: US (occurrence: None)
  Receive Date: 20130111
  Receipt Date: 20130111
  Transmission Date: 20140127
  Serious: Yes (Life-Threatening, Hospitalization)
  Sender: FDA-Public Use
  Company Number: 201310039

PATIENT
  Age: 81 Year
  Sex: Female

DRUGS (16)
  1. TORASEMIDE (TORASEMIDE) [Suspect]
     Dosage: 400 MG (200 MG, 2 IN 1 D)
  2. EPOETIN BETA [Suspect]
     Indication: NEPHROGENIC ANAEMIA
     Route: 042
     Dates: start: 20120113, end: 20120302
  3. DIGIMERCK (DIGITOXIN) [Concomitant]
  4. CONCOR (BISOPROLOL FUMARATE) [Concomitant]
  5. AMLODIPINE (AMLODIPINE) [Concomitant]
  6. RAMIPRIL (RAMPRIL) [Concomitant]
  7. L-THYROXINE (LEVOTHYROXINE SODIUM) [Concomitant]
  8. PANTOZOL (PANTOPRAZOLE) [Concomitant]
  9. MARCUMAR (PHENPROCOUMON) [Concomitant]
  10. BISOPROLOL (BISOPROLOL) [Concomitant]
  11. ANTIPHOSPHAT (ALUMINUM HYDROXIDE) [Concomitant]
  12. CORDAREX (AMIODARONE) [Concomitant]
  13. DREISAVIT (FOLIC ACID, THIAMINE HYDROCHLORIDE, RIBOFLAVIN, NICOTINAMIDE, CALCIUM PANTOTHENATE, PYRIDOXINE HYDROCHLORIDE, ASCORIBIC ACID, BIOTIN) [Concomitant]
  14. GEMFI 450 (GEMFIBROZIL) [Concomitant]
  15. ACETYLSALICYLIC ACID (ACETYLSALICYLIC ACID) [Suspect]
  16. DIGITOXIN (DIGITOXIN) [Suspect]

REACTIONS (10)
  - Dyspnoea [None]
  - Chest discomfort [None]
  - Hypertension [None]
  - Dialysis [None]
  - Bronchitis [None]
  - Haemoglobin decreased [None]
  - Cardiac disorder [None]
  - Platelet count increased [None]
  - Cerebrovascular accident [None]
  - Weight decreased [None]
